FAERS Safety Report 13192536 (Version 1)
Quarter: 2017Q1

REPORT INFORMATION
  Report Type: Spontaneous
  Country: US (occurrence: US)
  Receive Date: 20170207
  Receipt Date: 20170207
  Transmission Date: 20170428
  Serious: No
  Sender: FDA-Public Use
  Company Number: US-TORRENT-00001322

PATIENT
  Age: 68 Year
  Sex: Female

DRUGS (1)
  1. LOSARTAN + HCTZ [Suspect]
     Active Substance: HYDROCHLOROTHIAZIDE\LOSARTAN POTASSIUM

REACTIONS (2)
  - Product taste abnormal [Not Recovered/Not Resolved]
  - Drug dispensing error [Unknown]

NARRATIVE: CASE EVENT DATE: 20161120
